FAERS Safety Report 8957293 (Version 3)
Quarter: 2013Q1

REPORT INFORMATION
  Report Type: Report from Study
  Country: US (occurrence: US)
  Receive Date: 20121210
  Receipt Date: 20130328
  Transmission Date: 20140127
  Serious: Yes (Hospitalization, Other)
  Sender: FDA-Public Use
  Company Number: US-ABBOTT-12P-163-1016751-00

PATIENT
  Sex: Female

DRUGS (6)
  1. HUMIRA [Suspect]
     Indication: CROHN^S DISEASE
     Route: 058
     Dates: start: 20120926, end: 20121107
  2. GABAPENTIN [Concomitant]
     Indication: BACK PAIN
     Dosage: 300MG DAILY
  3. PREDNISONE [Concomitant]
     Indication: CROHN^S DISEASE
  4. UNKNOWN MUSCLE RELANT [Concomitant]
     Indication: PRODUCT USED FOR UNKNOWN INDICATION
  5. PENTASA [Concomitant]
     Indication: CROHN^S DISEASE
  6. HYDROCODONE [Concomitant]
     Indication: BACK PAIN
     Dosage: 10/500MG AS NEEDED

REACTIONS (13)
  - Intestinal perforation [Recovered/Resolved]
  - Pelvic abscess [Recovered/Resolved]
  - Pain [Recovered/Resolved]
  - Diarrhoea [Recovered/Resolved]
  - Drug ineffective [Unknown]
  - Infection [Recovered/Resolved]
  - Back pain [Recovered/Resolved]
  - Sepsis [Recovered/Resolved]
  - Immune system disorder [Unknown]
  - Weight decreased [Unknown]
  - Muscle atrophy [Unknown]
  - Asthenia [Unknown]
  - Intestinal obstruction [Recovered/Resolved]
